FAERS Safety Report 11891313 (Version 1)
Quarter: 2016Q1

REPORT INFORMATION
  Report Type: Spontaneous
  Country: US (occurrence: None)
  Receive Date: 20160105
  Receipt Date: 20160105
  Transmission Date: 20160526
  Serious: No
  Sender: FDA-Public Use
  Company Number: None

PATIENT
  Age: 85 Year
  Sex: Female

DRUGS (1)
  1. PROLIA [Suspect]
     Active Substance: DENOSUMAB
     Indication: OSTEOPOROSIS
     Dosage: 60MG/ML EVERY 6 MONTHS
     Route: 058
     Dates: start: 20141020, end: 20150423

REACTIONS (1)
  - Rash [None]

NARRATIVE: CASE EVENT DATE: 20150426
